FAERS Safety Report 9533363 (Version 2)
Quarter: 2013Q3

REPORT INFORMATION
  Report Type: Spontaneous
  Country: US (occurrence: US)
  Receive Date: 20130918
  Receipt Date: 20130927
  Transmission Date: 20140515
  Serious: No
  Sender: FDA-Public Use
  Company Number: US-BAYER-2013-112819

PATIENT
  Sex: Female

DRUGS (1)
  1. ALEVE CAPLET [Suspect]

REACTIONS (1)
  - Drug effect incomplete [None]
